FAERS Safety Report 4823764-1 (Version None)
Quarter: 2005Q4

REPORT INFORMATION
  Report Type: 
  Country: None (occurrence: None)
  Receive Date: 20051107
  Receipt Date: 20051026
  Transmission Date: 20060501
  Serious: Yes (Hospitalization)
  Sender: FDA-Public Use
  Company Number: 12754

PATIENT
  Age: 73 Year
  Sex: Female
  Weight: 54.5 kg

DRUGS (5)
  1. FLUOROURACIL [Suspect]
     Indication: BILIARY NEOPLASM
     Dosage: 375 MG/M2 PER_CYCLE IV
     Route: 042
     Dates: start: 20050712, end: 20050910
  2. LEUCOVORIN CALCIUM [Suspect]
     Indication: BILIARY NEOPLASM
     Dosage: 25 MG/M2 PER_CYCLE IV
     Route: 042
     Dates: start: 20050712, end: 20050910
  3. VICODIN [Concomitant]
  4. FENTANYL [Concomitant]
  5. INSULIN [Concomitant]

REACTIONS (9)
  - ABDOMINAL PAIN [None]
  - BILIARY NEOPLASM [None]
  - BLOOD GLUCOSE INCREASED [None]
  - DISEASE PROGRESSION [None]
  - FEBRILE NEUTROPENIA [None]
  - HAEMATOCRIT DECREASED [None]
  - HAEMOGLOBIN DECREASED [None]
  - MEDICAL DEVICE PAIN [None]
  - STAPHYLOCOCCAL INFECTION [None]
